FAERS Safety Report 4738785-7 (Version None)
Quarter: 2005Q3

REPORT INFORMATION
  Report Type: 
  Country: None (occurrence: None)
  Receive Date: 20050808
  Receipt Date: 20050808
  Transmission Date: 20060218
  Serious: Yes (Hospitalization, Disabling)
  Sender: FDA-Public Use
  Company Number: None

PATIENT
  Sex: Female
  Weight: 61.2356 kg

DRUGS (7)
  1. VISICOL [Suspect]
     Indication: COLONOSCOPY
     Dosage: 28 PILLS OVER 1.25 HOURS ORAL
     Route: 048
     Dates: start: 20050720, end: 20050720
  2. LIPITOR [Concomitant]
  3. LISINOPRIL [Concomitant]
  4. M.V.I. [Concomitant]
  5. FOSAMAX [Concomitant]
  6. CALCIUM GLUCONATE [Concomitant]
  7. ASPIRIN [Concomitant]

REACTIONS (6)
  - ABDOMINAL PAIN [None]
  - FREQUENT BOWEL MOVEMENTS [None]
  - GRAND MAL CONVULSION [None]
  - HUMERUS FRACTURE [None]
  - JOINT DISLOCATION [None]
  - SHOULDER PAIN [None]
